FAERS Safety Report 5500228-3 (Version None)
Quarter: 2007Q4

REPORT INFORMATION
  Report Type: 
  Country: None (occurrence: None)
  Receive Date: 20071029
  Receipt Date: 20071018
  Transmission Date: 20080405
  Serious: Yes (Hospitalization)
  Sender: FDA-Public Use
  Company Number: FR-JNJFOC-20071004645

PATIENT
  Age: 86 Year
  Sex: Female

DRUGS (3)
  1. DURAGESIC-100 [Suspect]
     Indication: DRUG USE FOR UNKNOWN INDICATION
     Route: 062
  2. AMOXICILLIN [Concomitant]
     Route: 065
  3. OFLOCET [Concomitant]
     Dosage: FOR THE PAST YEAR
     Route: 065

REACTIONS (2)
  - ARRHYTHMIA [None]
  - DERMATITIS BULLOUS [None]
